FAERS Safety Report 21767687 (Version 1)
Quarter: 2022Q4

REPORT INFORMATION
  Report Type: Report from Study
  Country: US (occurrence: US)
  Receive Date: 20221222
  Receipt Date: 20221222
  Transmission Date: 20230113
  Serious: No
  Sender: FDA-Public Use
  Company Number: US-ABBVIE-4235420

PATIENT
  Age: 56 Year

DRUGS (2)
  1. HUMIRA [Suspect]
     Active Substance: ADALIMUMAB
     Indication: Psoriasis
     Dosage: FORM STRENGTH: 40 MG/ CITRATE FREE
     Route: 058
     Dates: end: 2022
  2. PREDNISONE [Concomitant]
     Active Substance: PREDNISONE
     Indication: Product used for unknown indication

REACTIONS (5)
  - Haemorrhage [Unknown]
  - Therapeutic product effect decreased [Not Recovered/Not Resolved]
  - Nail psoriasis [Unknown]
  - Pain in extremity [Unknown]
  - Onychomadesis [Unknown]

NARRATIVE: CASE EVENT DATE: 20221020
